FAERS Safety Report 11402213 (Version 1)
Quarter: 2015Q3

REPORT INFORMATION
  Report Type: Spontaneous
  Country: US (occurrence: US)
  Receive Date: 20150821
  Receipt Date: 20150821
  Transmission Date: 20151125
  Serious: No
  Sender: FDA-Public Use
  Company Number: US-ROCHE-1358376

PATIENT
  Sex: Female

DRUGS (3)
  1. RIBAVIRIN. [Suspect]
     Active Substance: RIBAVIRIN
     Indication: CHRONIC HEPATITIS C
     Dosage: IN DIVIDED DOSES 600/400
     Route: 065
     Dates: start: 20120619, end: 20130128
  2. PEGASYS [Suspect]
     Active Substance: PEGINTERFERON ALFA-2A
     Indication: CHRONIC HEPATITIS C
     Route: 058
     Dates: start: 20120619, end: 20130128
  3. TELAPREVIR [Suspect]
     Active Substance: TELAPREVIR
     Indication: CHRONIC HEPATITIS C
     Route: 065
     Dates: start: 20120619, end: 20130128

REACTIONS (38)
  - Anorectal discomfort [Unknown]
  - Dysgeusia [Unknown]
  - Visual impairment [Unknown]
  - Alopecia [Unknown]
  - Vision blurred [Unknown]
  - Fatigue [Unknown]
  - Oral disorder [Unknown]
  - Joint dislocation [Not Recovered/Not Resolved]
  - Ear canal erythema [Unknown]
  - Urticaria [Unknown]
  - Nausea [Unknown]
  - Insomnia [Unknown]
  - Hypertension [Unknown]
  - Tachycardia [Unknown]
  - Bone loss [Unknown]
  - Rash macular [Recovered/Resolved]
  - Mood altered [Unknown]
  - Blister [Unknown]
  - Arthralgia [Not Recovered/Not Resolved]
  - Ear pruritus [Unknown]
  - Dyspepsia [Unknown]
  - Gastrooesophageal reflux disease [Unknown]
  - Muscular weakness [Unknown]
  - Musculoskeletal stiffness [Unknown]
  - Hypermobility syndrome [Unknown]
  - Rash [Unknown]
  - Anal pruritus [Unknown]
  - Peripheral swelling [Unknown]
  - Ear swelling [Unknown]
  - Ageusia [Unknown]
  - Pruritus [Unknown]
  - Joint swelling [Unknown]
  - Nail ridging [Unknown]
  - Headache [Unknown]
  - Haemoglobin decreased [Unknown]
  - Myalgia [Unknown]
  - Joint swelling [Not Recovered/Not Resolved]
  - Otitis media [Unknown]
